FAERS Safety Report 24657910 (Version 1)
Quarter: 2024Q4

REPORT INFORMATION
  Report Type: Spontaneous
  Country: CA (occurrence: CA)
  Receive Date: 20241125
  Receipt Date: 20241125
  Transmission Date: 20250115
  Serious: Yes (Other)
  Sender: IMMUNOCORE
  Company Number: CA-IMMUNOCORE, LTD-2024-IMC-003396

PATIENT

DRUGS (1)
  1. KIMMTRAK [Suspect]
     Active Substance: TEBENTAFUSP-TEBN
     Indication: Metastatic ocular melanoma

REACTIONS (4)
  - Metastases to spine [Unknown]
  - Nausea [Unknown]
  - Feeling hot [Unknown]
  - Malaise [Unknown]
